FAERS Safety Report 25660050 (Version 1)
Quarter: 2025Q3

REPORT INFORMATION
  Report Type: Other
  Country: IN (occurrence: IN)
  Receive Date: 20250808
  Receipt Date: 20250808
  Transmission Date: 20251021
  Serious: Yes (Hospitalization)
  Sender: ESJAY PHARMA
  Company Number: IN-ESJAY PHARMA-000892

PATIENT
  Age: 28 Year
  Sex: Male

DRUGS (5)
  1. IMATINIB [Suspect]
     Active Substance: IMATINIB
     Indication: B-cell type acute leukaemia
  2. ASPARAGINASE [Concomitant]
     Active Substance: ASPARAGINASE
     Indication: B-cell type acute leukaemia
  3. VINCRISTINE [Concomitant]
     Active Substance: VINCRISTINE
     Indication: B-cell type acute leukaemia
  4. PREDNISOLONE [Concomitant]
     Active Substance: PREDNISOLONE
     Indication: B-cell type acute leukaemia
  5. URSODIOL [Concomitant]
     Active Substance: URSODIOL
     Indication: B-cell type acute leukaemia

REACTIONS (2)
  - Nasal abscess [Recovered/Resolved]
  - Fungal infection [Recovered/Resolved]
